FAERS Safety Report 20090127 (Version 2)
Quarter: 2021Q4

REPORT INFORMATION
  Report Type: Spontaneous
  Country: UA (occurrence: UA)
  Receive Date: 20211119
  Receipt Date: 20211126
  Transmission Date: 20220303
  Serious: Yes (Other)
  Sender: FDA-Public Use
  Company Number: UA-NOVARTISPH-NVSC2021UA258461

PATIENT
  Age: 57 Year
  Sex: Female

DRUGS (2)
  1. BROLUCIZUMAB [Suspect]
     Active Substance: BROLUCIZUMAB
     Indication: Maculopathy
     Dosage: 6 MG, BID
     Route: 031
     Dates: start: 20211015
  2. LEVOXIMED [Concomitant]
     Indication: Antibiotic prophylaxis
     Dosage: 1 DF, QID
     Route: 057
     Dates: start: 20211015, end: 20211020

REACTIONS (4)
  - Hyperaemia [Not Recovered/Not Resolved]
  - Injection site extravasation [Not Recovered/Not Resolved]
  - Puncture site pain [Not Recovered/Not Resolved]
  - Unevaluable event [Unknown]

NARRATIVE: CASE EVENT DATE: 20211026
